FAERS Safety Report 25467757 (Version 1)
Quarter: 2025Q2

REPORT INFORMATION
  Report Type: Spontaneous
  Country: US (occurrence: None)
  Receive Date: 20250622
  Receipt Date: 20250622
  Transmission Date: 20250717
  Serious: Yes (Other)
  Sender: FDA-CTU
  Company Number: None

PATIENT
  Age: 39 Year
  Sex: Female
  Weight: 87.75 kg

DRUGS (2)
  1. ZYRTEC [Suspect]
     Active Substance: CETIRIZINE HYDROCHLORIDE
     Indication: Chronic spontaneous urticaria
  2. CETIRIZINE HYDROCHLORIDE [Suspect]
     Active Substance: CETIRIZINE HYDROCHLORIDE

REACTIONS (11)
  - Drug ineffective [None]
  - Pruritus [None]
  - Rebound effect [None]
  - Neuralgia [None]
  - Burning sensation [None]
  - Scratch [None]
  - Urticaria [None]
  - Skin induration [None]
  - Withdrawal syndrome [None]
  - Sleep disorder [None]
  - Product substitution [None]

NARRATIVE: CASE EVENT DATE: 20250614
